FAERS Safety Report 14953837 (Version 1)
Quarter: 2018Q2

REPORT INFORMATION
  Report Type: Report from Study
  Country: GB (occurrence: GB)
  Receive Date: 20180530
  Receipt Date: 20180530
  Transmission Date: 20180711
  Serious: Yes (Other)
  Sender: FDA-Public Use
  Company Number: GB-UCBSA-2018023932

PATIENT
  Sex: Female

DRUGS (1)
  1. LEVETIRACETAM. [Suspect]
     Active Substance: LEVETIRACETAM
     Indication: EPILEPSY
     Dosage: UNKNOWN DOSE

REACTIONS (7)
  - Pre-eclampsia [Unknown]
  - Premature delivery [Unknown]
  - Haemorrhage in pregnancy [Unknown]
  - Breast feeding [Unknown]
  - Gestational diabetes [Unknown]
  - Pregnancy [Unknown]
  - Postpartum haemorrhage [Unknown]
